FAERS Safety Report 15589006 (Version 6)
Quarter: 2021Q1

REPORT INFORMATION
  Report Type: Report from Study
  Country: US (occurrence: US)
  Receive Date: 20181106
  Receipt Date: 20210217
  Transmission Date: 20210419
  Serious: Yes (Hospitalization, Other)
  Sender: FDA-Public Use
  Company Number: US-ASTELLAS-2018US042719

PATIENT
  Age: 76 Year
  Sex: Male

DRUGS (4)
  1. ENZALUTAMIDE [Suspect]
     Active Substance: ENZALUTAMIDE
     Indication: PROSTATE CANCER
     Route: 048
     Dates: start: 201807
  2. ENZALUTAMIDE [Suspect]
     Active Substance: ENZALUTAMIDE
     Indication: HORMONE-REFRACTORY PROSTATE CANCER
     Route: 048
     Dates: start: 20180928
  3. ENZALUTAMIDE [Suspect]
     Active Substance: ENZALUTAMIDE
     Route: 048
     Dates: start: 20210208
  4. ENZALUTAMIDE [Suspect]
     Active Substance: ENZALUTAMIDE
     Route: 048
     Dates: start: 201809, end: 20210202

REACTIONS (29)
  - Initial insomnia [Not Recovered/Not Resolved]
  - Asthenia [Not Recovered/Not Resolved]
  - Abnormal sensation in eye [Unknown]
  - Nausea [Not Recovered/Not Resolved]
  - Cancer pain [Not Recovered/Not Resolved]
  - Sleep disorder [Unknown]
  - Fatigue [Not Recovered/Not Resolved]
  - Somnolence [Not Recovered/Not Resolved]
  - Vomiting [Not Recovered/Not Resolved]
  - Underdose [Unknown]
  - Product storage error [Unknown]
  - Neuropathy peripheral [Not Recovered/Not Resolved]
  - Feeling of despair [Not Recovered/Not Resolved]
  - Decreased appetite [Not Recovered/Not Resolved]
  - Glycosylated haemoglobin [Unknown]
  - Gait disturbance [Not Recovered/Not Resolved]
  - Product odour abnormal [Unknown]
  - Dry mouth [Unknown]
  - Hot flush [Recovered/Resolved]
  - Illness [Unknown]
  - Product dose omission in error [Not Recovered/Not Resolved]
  - Drug ineffective [Unknown]
  - Depression [Not Recovered/Not Resolved]
  - Radiation injury [Not Recovered/Not Resolved]
  - Balance disorder [Not Recovered/Not Resolved]
  - Diarrhoea [Not Recovered/Not Resolved]
  - Laboratory test abnormal [Recovering/Resolving]
  - Dyspnoea [Recovered/Resolved]
  - Expired product administered [Unknown]

NARRATIVE: CASE EVENT DATE: 20190726
